FAERS Safety Report 6121886-9 (Version None)
Quarter: 2009Q1

REPORT INFORMATION
  Report Type: 
  Country: None (occurrence: None)
  Receive Date: 20090317
  Receipt Date: 20090311
  Transmission Date: 20090719
  Serious: Yes (Other)
  Sender: FDA-Public Use
  Company Number: JP-ABBOTT-09P-087-0561981-00

PATIENT
  Age: 68 Year
  Sex: Female

DRUGS (5)
  1. KLARICID TABLETS [Suspect]
     Indication: BRONCHITIS
     Dosage: 400 MG DAILY
     Route: 048
     Dates: start: 20090213, end: 20090217
  2. DASEN [Suspect]
     Indication: BRONCHITIS
     Dosage: 10 MG DAILY
     Route: 048
     Dates: start: 20090213, end: 20090217
  3. CANDESARTAN CILEXETIL [Concomitant]
     Indication: HYPERTENSION
     Dosage: 8 MG DAILY
     Route: 048
  4. AZELNIDIPINE [Concomitant]
     Indication: HYPERTENSION
     Dosage: 16 MG DAILY
     Route: 048
  5. ATORVASTATIN CALCIUM [Concomitant]
     Indication: HYPERLIPIDAEMIA
     Dosage: 5 MG DAILY
     Route: 048

REACTIONS (2)
  - LOSS OF CONSCIOUSNESS [None]
  - URINARY INCONTINENCE [None]
